FAERS Safety Report 9494115 (Version 1)
Quarter: 2013Q3

REPORT INFORMATION
  Report Type: Not Available
  Country: US (occurrence: US)
  Receive Date: 20130903
  Receipt Date: 20130903
  Transmission Date: 20140515
  Serious: Yes (Other)
  Sender: FDA-Public Use
  Company Number: US-LUPIN PHARMACEUTICALS INC.-E2B_00001212

PATIENT
  Age: 5 Year
  Sex: Female

DRUGS (6)
  1. CEFDINIR [Suspect]
     Indication: PRODUCT USED FOR UNKNOWN INDICATION
     Route: 048
     Dates: start: 20130801, end: 201308
  2. CEFDINIR [Suspect]
     Route: 048
     Dates: start: 201308
  3. FLOVENT [Suspect]
     Indication: PRODUCT USED FOR UNKNOWN INDICATION
     Route: 048
  4. FLONASE [Suspect]
     Indication: PRODUCT USED FOR UNKNOWN INDICATION
     Route: 045
  5. VENTOLIN [Concomitant]
     Indication: PRODUCT USED FOR UNKNOWN INDICATION
     Route: 048
  6. ALBUTEROL FOR NEBULIZER [Concomitant]
     Indication: PRODUCT USED FOR UNKNOWN INDICATION
     Route: 048

REACTIONS (2)
  - Pharyngitis streptococcal [Unknown]
  - Ear infection [Unknown]
